FAERS Safety Report 6859310-0 (Version None)
Quarter: 2010Q3

REPORT INFORMATION
  Report Type: 
  Country: None (occurrence: None)
  Receive Date: 20100719
  Receipt Date: 20080617
  Transmission Date: 20110219
  Serious: No
  Sender: FDA-Public Use
  Company Number: US-PFIZER INC-2008017389

PATIENT
  Sex: Male
  Weight: 87.09 kg

DRUGS (2)
  1. CHANTIX [Suspect]
     Indication: SMOKING CESSATION THERAPY
     Dates: start: 20080211
  2. ALBUTEROL [Concomitant]

REACTIONS (5)
  - DIZZINESS [None]
  - INSOMNIA [None]
  - IRRITABILITY [None]
  - NAUSEA [None]
  - NERVOUSNESS [None]
